FAERS Safety Report 14902216 (Version 1)
Quarter: 2018Q2

REPORT INFORMATION
  Report Type: Report from Study
  Country: None (occurrence: US)
  Receive Date: 20180516
  Receipt Date: 20180516
  Transmission Date: 20180711
  Serious: Yes (Life-Threatening)
  Sender: FDA-Public Use
  Company Number: US-B. BRAUN MEDICAL INC.-2047928

PATIENT
  Age: 41 Year
  Sex: Female

DRUGS (4)
  1. LIDOCAINE HYDROCHLORIDE AND DEXTROSE [Suspect]
     Active Substance: DEXTROSE\LIDOCAINE HYDROCHLORIDE
  2. METHYLPREDNISOLONE SODIUM SUCCINATE. [Suspect]
     Active Substance: METHYLPREDNISOLONE SODIUM SUCCINATE
     Route: 042
  3. AMIODARONE [Suspect]
     Active Substance: AMIODARONE
  4. MILRINONE [Suspect]
     Active Substance: MILRINONE

REACTIONS (1)
  - Drug ineffective [Unknown]
